FAERS Safety Report 17762452 (Version 1)
Quarter: 2020Q2

REPORT INFORMATION
  Report Type: Spontaneous
  Country: IE (occurrence: IE)
  Receive Date: 20200508
  Receipt Date: 20200508
  Transmission Date: 20200714
  Serious: Yes (Other)
  Sender: FDA-Public Use
  Company Number: NVSC2020IE124457

PATIENT
  Age: 40 Year
  Sex: Male
  Weight: 52 kg

DRUGS (8)
  1. METRONIDAZOLE. [Concomitant]
     Active Substance: METRONIDAZOLE
     Indication: COLITIS
     Dosage: 500 MG, Q8H
     Route: 065
     Dates: start: 20200124, end: 20200126
  2. CO AMOXICLAV TEVA [Concomitant]
     Indication: COLITIS
     Dosage: 1.2 G, Q8H
     Route: 065
     Dates: start: 20200121, end: 20200126
  3. PANTOPRAZOL AZEVEDOS [Concomitant]
     Indication: GASTROINTESTINAL HAEMORRHAGE
     Dosage: 40 MG, Q12H
     Route: 065
     Dates: start: 20200121
  4. KLEAN-PREP                              /IRE/ [Concomitant]
     Indication: GASTRIC LAVAGE
     Dosage: UNK
     Route: 048
     Dates: start: 20200123, end: 20200123
  5. CELEVAC [Concomitant]
     Indication: PRODUCT USED FOR UNKNOWN INDICATION
     Dosage: UNK
     Route: 065
  6. PARACETAMOL 10 MG/ML SOLUTION FOR INFUSION [Suspect]
     Active Substance: ACETAMINOPHEN
     Indication: PAIN
     Dosage: 1 G, Q6H
     Route: 042
     Dates: start: 20200120, end: 20200127
  7. MACROLIEF [Concomitant]
     Indication: PRODUCT USED FOR UNKNOWN INDICATION
     Dosage: UNK
     Route: 048
     Dates: start: 20200121
  8. ANXICALM [Concomitant]
     Indication: SEDATIVE THERAPY
     Dosage: 2 MG
     Route: 048
     Dates: start: 20200124, end: 20200124

REACTIONS (1)
  - Acute hepatic failure [Recovering/Resolving]

NARRATIVE: CASE EVENT DATE: 20200125
